FAERS Safety Report 4379183-8 (Version None)
Quarter: 2004Q2

REPORT INFORMATION
  Report Type: 
  Country: None (occurrence: None)
  Receive Date: 20040610
  Receipt Date: 20040604
  Transmission Date: 20050107
  Serious: Yes (Hospitalization)
  Sender: FDA-Public Use
  Company Number: US-JNJFOC-20040601306

PATIENT
  Age: 58 Year
  Sex: Female

DRUGS (12)
  1. HALOPERIDOL [Suspect]
     Indication: AGITATION
     Dosage: 340 MG, IN 1 DAY, INTRAVENOUS   SEE IMAGE
     Route: 042
  2. LEVOFLOXACIN [Concomitant]
  3. PIPERACILLIN-TAZOBACTAM (PIP/TAZO) [Concomitant]
  4. DOXYCYCLINE [Concomitant]
  5. MIDAZOLAM HCL [Concomitant]
  6. MORPHINE [Concomitant]
  7. DILTIAZEM [Concomitant]
  8. ENOXAPARIN SODIUM [Concomitant]
  9. FAMOTIDINE [Concomitant]
  10. METOCLOPRAMIDE [Concomitant]
  11. HYDROXYCHLOROQUINE SULFATE [Concomitant]
  12. NICOTINE [Concomitant]

REACTIONS (4)
  - BLOOD MAGNESIUM DECREASED [None]
  - ELECTROCARDIOGRAM QT CORRECTED INTERVAL PROLONGED [None]
  - TORSADE DE POINTES [None]
  - VENTRICULAR TACHYCARDIA [None]
